FAERS Safety Report 6740698-6 (Version None)
Quarter: 2010Q2

REPORT INFORMATION
  Report Type: 
  Country: None (occurrence: None)
  Receive Date: 20100521
  Receipt Date: 20100510
  Transmission Date: 20101027
  Serious: Yes (Hospitalization)
  Sender: FDA-Public Use
  Company Number: 7004680

PATIENT
  Age: 13 Year
  Sex: Female

DRUGS (2)
  1. REBIF [Suspect]
     Indication: RELAPSING-REMITTING MULTIPLE SCLEROSIS
     Dosage: 22 MCG, 3 IN 1 WK, SUBCUTANEOUS
     Route: 058
     Dates: start: 20090820, end: 20100301
  2. TYLENOL (PARACETAMOL) [Concomitant]

REACTIONS (9)
  - ABASIA [None]
  - ASTHENIA [None]
  - FAECAL INCONTINENCE [None]
  - FALL [None]
  - HYPOAESTHESIA [None]
  - NAUSEA [None]
  - NO THERAPEUTIC RESPONSE [None]
  - NUCLEAR MAGNETIC RESONANCE IMAGING ABNORMAL [None]
  - URINARY INCONTINENCE [None]
